FAERS Safety Report 4417125-7 (Version None)
Quarter: 2004Q3

REPORT INFORMATION
  Report Type: 
  Country: None (occurrence: None)
  Receive Date: 20040802
  Receipt Date: 20040722
  Transmission Date: 20050211
  Serious: Yes (Hospitalization)
  Sender: FDA-Public Use
  Company Number: 2004223211US

PATIENT
  Age: 60 Year
  Sex: Female
  Weight: 63 kg

DRUGS (7)
  1. IRINOTECAN (IRINOTECAN)CAPSULE [Suspect]
     Indication: NON-SMALL CELL LUNG CANCER
     Dosage: 80 MG, QD FOR 5 DAYS, ORAL
     Route: 048
     Dates: start: 20040614, end: 20040618
  2. IRINOTECAN (IRINOTECAN)CAPSULE [Suspect]
  3. IRINOTECAN (IRINOTECAN)CAPSULE [Suspect]
  4. COMPARATOR-CAPECITABINE (CAPECITABINE )TABLET [Suspect]
     Indication: NON-SMALL CELL LUNG CANCER
     Dosage: 1300 MG, BID FOR 9 DAYS, ORAL
     Route: 048
     Dates: start: 20040619, end: 20040627
  5. COMPARATOR-CAPECITABINE (CAPECITABINE )TABLET [Suspect]
  6. IMODIUM (LPERAMIDE HYDROCHLORIDE) [Concomitant]
     Indication: DIARRHOEA
     Dosage: PRN, ORAL
     Route: 048
     Dates: start: 20040628
  7. OXYCODONE (OXYCODONE) [Concomitant]

REACTIONS (11)
  - ABDOMINAL PAIN [None]
  - BLOOD POTASSIUM DECREASED [None]
  - BODY TEMPERATURE DECREASED [None]
  - DEHYDRATION [None]
  - DIARRHOEA [None]
  - HEART RATE INCREASED [None]
  - ILEUS [None]
  - INTESTINAL DILATATION [None]
  - MARKEDLY REDUCED DIETARY INTAKE [None]
  - NAUSEA [None]
  - VOMITING [None]
